FAERS Safety Report 10329797 (Version 1)
Quarter: 2014Q3

REPORT INFORMATION
  Report Type: Spontaneous
  Country: IT (occurrence: None)
  Receive Date: 20140717
  Receipt Date: 20140717
  Transmission Date: 20150326
  Serious: Yes (Hospitalization)
  Sender: FDA-Public Use
  Company Number: AUR-APL-2014-07475

PATIENT
  Age: 84 Year
  Sex: Male

DRUGS (5)
  1. METFORMIN [Suspect]
     Active Substance: METFORMIN HYDROCHLORIDE
     Indication: DIABETES MELLITUS
     Route: 048
     Dates: start: 20140613, end: 20140707
  2. LANTUS [Suspect]
     Active Substance: INSULIN GLARGINE
     Indication: DIABETES MELLITUS
     Route: 058
     Dates: start: 20140613, end: 20140707
  3. HALOPERIDOL. [Concomitant]
     Active Substance: HALOPERIDOL
  4. RAMIPRIL. [Concomitant]
     Active Substance: RAMIPRIL
  5. ESOMEPRAZOLE [Concomitant]
     Active Substance: ESOMEPRAZOLE

REACTIONS (3)
  - Hypoglycaemia [None]
  - Head injury [None]
  - Syncope [None]

NARRATIVE: CASE EVENT DATE: 20140707
